FAERS Safety Report 5819481-1 (Version None)
Quarter: 2008Q3

REPORT INFORMATION
  Report Type: 
  Country: None (occurrence: None)
  Receive Date: 20080723
  Receipt Date: 20080717
  Transmission Date: 20090109
  Serious: Yes (Other)
  Sender: FDA-Public Use
  Company Number: FR-JNJFOC-20080704040

PATIENT
  Age: 48 Year
  Sex: Male

DRUGS (5)
  1. EPITOMAX [Suspect]
     Route: 065
  2. EPITOMAX [Suspect]
     Route: 065
  3. EPITOMAX [Suspect]
     Indication: DRUG USE FOR UNKNOWN INDICATION
     Route: 065
  4. AMITRIPTYLINE HYDROCHLORIDE [Concomitant]
  5. PROPRANOLOL [Concomitant]

REACTIONS (4)
  - BRONCHITIS [None]
  - COUGH [None]
  - DISEASE RECURRENCE [None]
  - MIDDLE INSOMNIA [None]
